FAERS Safety Report 17152831 (Version 2)
Quarter: 2020Q3

REPORT INFORMATION
  Report Type: Spontaneous
  Country: HK (occurrence: HK)
  Receive Date: 20191213
  Receipt Date: 20191218
  Transmission Date: 20201104
  Serious: Yes (Other)
  Sender: FDA-Public Use
  Company Number: NVSC2019HK067356

PATIENT
  Age: 43 Year
  Sex: Male

DRUGS (1)
  1. FINGOLIMOD. [Suspect]
     Active Substance: FINGOLIMOD
     Indication: RELAPSING-REMITTING MULTIPLE SCLEROSIS
     Dosage: 0.5 MG, QD
     Route: 065

REACTIONS (6)
  - Relapsing-remitting multiple sclerosis [Unknown]
  - Cognitive disorder [Not Recovered/Not Resolved]
  - Executive dysfunction [Unknown]
  - Abdominal discomfort [Unknown]
  - Bladder disorder [Unknown]
  - Memory impairment [Not Recovered/Not Resolved]
